FAERS Safety Report 9485854 (Version 2)
Quarter: 2014Q1

REPORT INFORMATION
  Report Type: Spontaneous
  Country: JP (occurrence: None)
  Receive Date: 20130821
  Receipt Date: 20140210
  Transmission Date: 20141002
  Serious: Yes (Other)
  Sender: FDA-Public Use
  Company Number: CO-OR-JP-2013-015

PATIENT
  Age: 53 Year
  Sex: Male
  Weight: 61 kg

DRUGS (2)
  1. PREDNISOLONE [Suspect]
     Indication: METASTASES TO ADRENALS
     Dates: start: 200702, end: 200702
  2. IMATINIB [Suspect]
     Indication: METASTASES TO ADRENALS
     Dates: start: 200602, end: 200604

REACTIONS (12)
  - Rash pruritic [None]
  - Metastases to adrenals [None]
  - Recurrent cancer [None]
  - Pyrexia [None]
  - Metastases to peritoneum [None]
  - Dermatitis [None]
  - Gastrointestinal stromal tumour [None]
  - Drug eruption [None]
  - Retroperitoneal haemorrhage [None]
  - Neoplasm [None]
  - Palmoplantar keratoderma [None]
  - Tinea pedis [None]
